FAERS Safety Report 10726550 (Version 1)
Quarter: 2015Q1

REPORT INFORMATION
  Report Type: Spontaneous
  Country: US (occurrence: None)
  Receive Date: 20150120
  Receipt Date: 20150120
  Transmission Date: 20150721
  Serious: Yes (Hospitalization, Other)
  Sender: FDA-Public Use
  Company Number: None

PATIENT
  Age: 61 Year
  Sex: Female
  Weight: 119.5 kg

DRUGS (12)
  1. OMEPRAZOLE. [Concomitant]
     Active Substance: OMEPRAZOLE
  2. DIPHENOXYLATE-ATROPINE (DUOGEBIXTKATE W.ATRIOUBE SYKFATE( [Concomitant]
     Active Substance: ATROPINE SULFATE\DIPHENOXYLATE
  3. INSULIN GLAR INSULIN GLARGINE [Concomitant]
  4. LIDOCAINE. [Suspect]
     Active Substance: LIDOCAINE
  5. OXYCODONE [Concomitant]
     Active Substance: OXYCODONE
  6. INSULIN [Concomitant]
     Active Substance: INSULIN NOS
  7. MORPHINE [Concomitant]
     Active Substance: MORPHINE
  8. PROPARACAINE [Suspect]
     Active Substance: PROPARACAINE
  9. HUMALOG [Concomitant]
     Active Substance: INSULIN LISPRO
  10. PROAIR HFDA [Concomitant]
  11. LISINOPRIL. [Concomitant]
     Active Substance: LISINOPRIL
  12. CRESTOR [Concomitant]
     Active Substance: ROSUVASTATIN CALCIUM

REACTIONS (1)
  - Angina unstable [None]

NARRATIVE: CASE EVENT DATE: 20141213
